FAERS Safety Report 8352553-9 (Version None)
Quarter: 2012Q2

REPORT INFORMATION
  Report Type: 
  Country: None (occurrence: None)
  Receive Date: 20120511
  Receipt Date: 20120510
  Transmission Date: 20120825
  Serious: Yes (Death, Other)
  Sender: FDA-Public Use
  Company Number: PHHY2012JP021896

PATIENT
  Age: 64 Year
  Sex: Female

DRUGS (1)
  1. PAMIDRONATE DISODIUM [Suspect]
     Indication: METASTASES TO BONE
     Dosage: 90 MG, QMO
     Route: 041
     Dates: start: 20060201

REACTIONS (6)
  - TOOTH FRACTURE [None]
  - MALIGNANT PLEURAL EFFUSION [None]
  - EXPOSED BONE IN JAW [None]
  - FALL [None]
  - SWELLING [None]
  - OSTEONECROSIS OF JAW [None]
